FAERS Safety Report 4363457-0 (Version None)
Quarter: 2004Q2

REPORT INFORMATION
  Report Type: 
  Country: None (occurrence: None)
  Receive Date: 20040517
  Receipt Date: 20040323
  Transmission Date: 20050107
  Serious: No
  Sender: FDA-Public Use
  Company Number: S04-USA-01603-01

PATIENT
  Age: 66 Year
  Sex: Female

DRUGS (7)
  1. NAMENDA [Suspect]
     Indication: PARKINSON'S DISEASE
     Dosage: 5 MG QD PO
     Route: 048
     Dates: start: 20040226, end: 20040303
  2. NAMENDA [Suspect]
     Indication: PARKINSON'S DISEASE
     Dosage: 10 MG QD PO
     Route: 048
     Dates: start: 20040304, end: 20040310
  3. NAMENDA [Suspect]
     Indication: PARKINSON'S DISEASE
     Dosage: 15 MG QD PO
     Route: 048
     Dates: start: 20040311, end: 20040317
  4. NAMENDA [Suspect]
     Indication: PARKINSON'S DISEASE
     Dosage: 10 MG BID PO
     Route: 048
     Dates: start: 20040318
  5. SINEMET [Concomitant]
  6. REMINYL [Concomitant]
  7. ZOLOFT [Concomitant]

REACTIONS (2)
  - SOMNOLENCE [None]
  - VISUAL ACUITY REDUCED [None]
